FAERS Safety Report 5113750-9 (Version None)
Quarter: 2006Q3

REPORT INFORMATION
  Report Type: 
  Country: None (occurrence: None)
  Receive Date: 20060921
  Receipt Date: 20060921
  Transmission Date: 20061208
  Serious: Yes (Hospitalization)
  Sender: FDA-Public Use
  Company Number: None

PATIENT
  Sex: Male
  Weight: 92.2 kg

DRUGS (16)
  1. WARFARIN SODIUM [Suspect]
     Indication: ANTICOAGULANT THERAPY
     Dosage: 5 MG PO DAILY
     Route: 048
     Dates: start: 20060407, end: 20060625
  2. WARFARIN SODIUM [Suspect]
     Indication: HEART VALVE REPLACEMENT
     Dosage: 5 MG PO DAILY
     Route: 048
     Dates: start: 20060407, end: 20060625
  3. ALLOPURINOL [Concomitant]
  4. ALPRAZOLAM [Concomitant]
  5. DIGOXIN [Concomitant]
  6. DONEPEZIL HCL [Concomitant]
  7. FUROSEMIDE [Concomitant]
  8. GABAPENTIN [Concomitant]
  9. ISOSORBIDE [Concomitant]
  10. METOPROLOL TARTRATE [Concomitant]
  11. OLANZAPINE [Concomitant]
  12. SIMVASTATIN [Concomitant]
  13. THEOPHYLLINE [Concomitant]
  14. MORPHINE [Concomitant]
  15. SERTRALINE [Concomitant]
  16. TEMAZEPAM [Concomitant]

REACTIONS (3)
  - CHEST PAIN [None]
  - DYSPNOEA EXERTIONAL [None]
  - INTERNATIONAL NORMALISED RATIO INCREASED [None]
